FAERS Safety Report 18999474 (Version 4)
Quarter: 2021Q2

REPORT INFORMATION
  Report Type: Report from Study
  Country: US (occurrence: US)
  Receive Date: 20210311
  Receipt Date: 20210616
  Transmission Date: 20210717
  Serious: Yes (Other)
  Sender: FDA-Public Use
  Company Number: US-TAKEDA-US201919994

PATIENT
  Age: 59 Year
  Sex: Female

DRUGS (1)
  1. HUMAN NORMAL IMMUNOGLOBULIN; LIQUID [Suspect]
     Active Substance: HUMAN IMMUNOGLOBULIN G
     Indication: PRIMARY IMMUNODEFICIENCY SYNDROME
     Route: 042

REACTIONS (11)
  - Fatigue [Unknown]
  - Meningococcal sepsis [Unknown]
  - Headache [Unknown]
  - Weight decreased [Unknown]
  - Throat irritation [Unknown]
  - Abdominal pain upper [Unknown]
  - Sinusitis [Unknown]
  - Ear infection [Unknown]
  - Product supply issue [Unknown]
  - Illness [Unknown]
  - Migraine [Unknown]

NARRATIVE: CASE EVENT DATE: 20190617
